FAERS Safety Report 20859879 (Version 1)
Quarter: 2022Q2

REPORT INFORMATION
  Report Type: Spontaneous
  Country: FR (occurrence: FR)
  Receive Date: 20220523
  Receipt Date: 20220523
  Transmission Date: 20220720
  Serious: Yes (Hospitalization)
  Sender: FDA-Public Use
  Company Number: FR-ABBVIE-22K-056-4404073-00

PATIENT
  Age: 58 Year
  Sex: Male
  Weight: 88 kg

DRUGS (4)
  1. DEPAKOTE [Suspect]
     Active Substance: DIVALPROEX SODIUM
     Indication: Mania
     Dosage: 1 TAB IN MORNING, 2 TABLETS IN EVENING
     Route: 048
     Dates: start: 20220228, end: 20220321
  2. VALACYCLOVIR HYDROCHLORIDE [Suspect]
     Active Substance: VALACYCLOVIR HYDROCHLORIDE
     Indication: Herpes zoster
     Dosage: 2 TABLETS IN THE MORNING, 2 TABLETS AT NOON, 2 TABLETS IN THE EVENING
     Route: 048
     Dates: start: 20220318, end: 20220323
  3. CLOZAPINE [Suspect]
     Active Substance: CLOZAPINE
     Indication: Schizophrenia
     Dosage: 1/2 TABLET IN THE MORNING, 1 TABLET IN THE EVENING
     Route: 048
     Dates: start: 20210412, end: 20220321
  4. HALOPERIDOL DECANOATE [Suspect]
     Active Substance: HALOPERIDOL DECANOATE
     Indication: Schizophrenia
     Dosage: DOSAGE 50MG/ML INJECTION OF 4ML
     Route: 030
     Dates: start: 20220316, end: 20220316

REACTIONS (1)
  - Confusional state [Recovered/Resolved]

NARRATIVE: CASE EVENT DATE: 20220101
